FAERS Safety Report 5506037-3 (Version None)
Quarter: 2007Q4

REPORT INFORMATION
  Report Type: 
  Country: None (occurrence: None)
  Receive Date: 20071101
  Receipt Date: 20071018
  Transmission Date: 20080405
  Serious: Yes (Hospitalization)
  Sender: FDA-Public Use
  Company Number: 100#03#2007-04223

PATIENT
  Age: 39 Year
  Sex: Female

DRUGS (6)
  1. CIPROFLOXACIN [Suspect]
     Indication: DRUG USE FOR UNKNOWN INDICATION
     Dosage: 500 MG TWICE A DAY
     Dates: end: 20070921
  2. TYGACIL [Suspect]
     Indication: OSTEOMYELITIS
     Dosage: 50 MG TWICE A DAY INTRAVENOUS
     Route: 042
     Dates: start: 20070910
  3. CASPOFUNGIN (CASPOFUNGIN) (CASPOFUNGIN) [Concomitant]
  4. LORATADINE (LORATADINE) (LORATADINE) [Concomitant]
  5. PARACETAMOL (PARACETAMOL) (PARACETAMOL) [Concomitant]
  6. RANITIDINE (RANITDINE) (RANITIDINE) [Concomitant]

REACTIONS (1)
  - MOUTH ULCERATION [None]
